FAERS Safety Report 6576690-4 (Version None)
Quarter: 2010Q1

REPORT INFORMATION
  Report Type: 
  Country: None (occurrence: None)
  Receive Date: 20100210
  Receipt Date: 20100129
  Transmission Date: 20100710
  Serious: Yes (Hospitalization)
  Sender: FDA-Public Use
  Company Number: JP-ROCHE-668558

PATIENT
  Sex: Female
  Weight: 42 kg

DRUGS (2)
  1. AVASTIN [Suspect]
     Indication: MACULAR DEGENERATION
     Route: 031
     Dates: start: 20090120, end: 20090120
  2. AVASTIN [Suspect]
     Route: 031
     Dates: start: 20090413, end: 20090413

REACTIONS (1)
  - ENDOPHTHALMITIS [None]
